FAERS Safety Report 22122307 (Version 2)
Quarter: 2023Q2

REPORT INFORMATION
  Report Type: Report from Study
  Country: US (occurrence: US)
  Receive Date: 20230321
  Receipt Date: 20230517
  Transmission Date: 20230721
  Serious: Yes (Death, Hospitalization)
  Sender: FDA-Public Use
  Company Number: US-BAYER-2023A025934

PATIENT
  Age: 83 Year
  Sex: Female
  Weight: 59.864 kg

DRUGS (4)
  1. ADEMPAS [Suspect]
     Active Substance: RIOCIGUAT
     Indication: Pulmonary arterial hypertension
     Dosage: 0.5 MG, TID
     Route: 048
  2. REMODULIN [Suspect]
     Active Substance: TREPROSTINIL
     Indication: Pulmonary arterial hypertension
     Dosage: UNK
     Route: 058
     Dates: start: 20230116
  3. REMODULIN [Suspect]
     Active Substance: TREPROSTINIL
     Indication: Pulmonary arterial hypertension
     Dosage: 0.018 ?G/KG
     Dates: start: 2023
  4. REMODULIN [Suspect]
     Active Substance: TREPROSTINIL
     Indication: Pulmonary arterial hypertension
     Dosage: 0.020 ?G/KG, CONTINUING (PHARMACY FILLED WITH 2.8 ML PER CASSETTE; RATE OF 30 MCL PER HOUR)
     Route: 058
     Dates: start: 2023

REACTIONS (6)
  - Death [Fatal]
  - Dyspnoea [None]
  - Oxygen saturation decreased [None]
  - Pain in extremity [None]
  - Arthralgia [None]
  - Drug hypersensitivity [None]

NARRATIVE: CASE EVENT DATE: 20230201
